FAERS Safety Report 16340541 (Version 1)
Quarter: 2019Q2

REPORT INFORMATION
  Report Type: Spontaneous
  Country: NL (occurrence: NL)
  Receive Date: 20190522
  Receipt Date: 20190522
  Transmission Date: 20190711
  Serious: Yes (Hospitalization, Other)
  Sender: FDA-Public Use
  Company Number: NL-AUROBINDO-AUR-APL-2019-026599

PATIENT

DRUGS (1)
  1. SIMVASTATIN FILM-COATED TABLETS 20MG [Suspect]
     Active Substance: SIMVASTATIN
     Indication: HYPERCHOLESTEROLAEMIA
     Dosage: 20 MILLIGRAM, DAILY (1 A DAY)
     Route: 048
     Dates: start: 201406

REACTIONS (2)
  - Cataract [Unknown]
  - Myalgia [Unknown]

NARRATIVE: CASE EVENT DATE: 20140620
